FAERS Safety Report 8883403 (Version 4)
Quarter: 2013Q1

REPORT INFORMATION
  Report Type: Report from Study
  Country: JP (occurrence: JP)
  Receive Date: 20121102
  Receipt Date: 20130221
  Transmission Date: 20140127
  Serious: Yes (Other)
  Sender: FDA-Public Use
  Company Number: JP-009507513-1210JPN014254

PATIENT
  Age: 62 Year
  Sex: Male
  Weight: 68 kg

DRUGS (23)
  1. PEGINTRON [Suspect]
     Indication: CHRONIC HEPATITIS C
     Dosage: 1.5 MICROGRAM PER KILOGRAM, UNK
     Route: 058
     Dates: start: 20120417, end: 20120508
  2. PEGINTRON [Suspect]
     Dosage: 0.75 MICROGRAM PER KILOGRAM, UNK
     Route: 058
     Dates: start: 20120515, end: 20120515
  3. PEGINTRON [Suspect]
     Dosage: 0.75 UNK, UNK
     Route: 058
     Dates: start: 20120605, end: 20120612
  4. PEGINTRON [Suspect]
     Dosage: 1.5 MICROGRAM PER KILOGRAM, QW
     Route: 058
     Dates: start: 20120619, end: 20120731
  5. PEGINTRON [Suspect]
     Dosage: 0.75 MICROGRAM PER KILOGRAM, QW
     Route: 058
     Dates: start: 20120807, end: 20120807
  6. PEGINTRON [Suspect]
     Dosage: 1.5 MICROGRAM PER KILOGRAM, QW
     Route: 058
     Dates: start: 20120814, end: 20120904
  7. REBETOL [Suspect]
     Indication: CHRONIC HEPATITIS C
     Dosage: 800 MG, UNK, CUMULATIVE DOSE: 3200 MG
     Route: 048
     Dates: start: 20120417, end: 20120430
  8. REBETOL [Suspect]
     Dosage: 600 MG, QD, CUMULATIVE DOSE: 3200 MG
     Route: 048
     Dates: start: 20120501, end: 20120514
  9. REBETOL [Suspect]
     Dosage: 400 MG,QD, CUMULATIVE DOSE: 3200 MG
     Route: 048
     Dates: start: 20120515, end: 20120518
  10. REBETOL [Suspect]
     Dosage: 200 MG, QD
     Route: 048
     Dates: start: 20120605, end: 20120611
  11. REBETOL [Suspect]
     Dosage: 400 MG, QD
     Route: 048
     Dates: start: 20120612, end: 20120618
  12. REBETOL [Suspect]
     Dosage: 800 MG, QD
     Route: 048
     Dates: start: 20120619, end: 20120716
  13. REBETOL [Suspect]
     Dosage: 600 MG, QD
     Route: 048
     Dates: start: 20120717, end: 20120730
  14. REBETOL [Suspect]
     Dosage: 400 MG, QD
     Route: 048
     Dates: start: 20120731, end: 20120907
  15. TELAVIC [Suspect]
     Indication: CHRONIC HEPATITIS C
     Dosage: 2250 MG,QD, CUMULATIVE DOSE: 9000 MG
     Route: 048
     Dates: start: 20120417, end: 20120518
  16. ZYLORIC [Concomitant]
     Indication: HYPERURICAEMIA
     Dosage: 100 MG, QD
     Route: 048
     Dates: start: 20120420, end: 20120518
  17. DERMOVATE [Concomitant]
     Indication: SKIN DISORDER
     Dosage: 5G PER TUBE, 25 G
     Route: 061
     Dates: start: 20120519, end: 20120618
  18. DERMOVATE [Concomitant]
     Indication: RASH
  19. ALLELOCK [Concomitant]
     Indication: SKIN DISORDER
     Dosage: 10 MG, QD
     Route: 048
     Dates: start: 20120519
  20. ALLELOCK [Concomitant]
     Indication: RASH
     Dosage: 10 MG, QD
     Route: 048
     Dates: start: 20120519, end: 20120618
  21. ZOSYN [Concomitant]
     Indication: PLEURISY
     Dosage: 13.5 G, QD
     Route: 041
     Dates: start: 20120908, end: 20120910
  22. SULBACILLIN [Concomitant]
     Indication: PLEURISY
     Dosage: 3 G, UNK
     Route: 041
     Dates: start: 20120911, end: 20120919
  23. [THERAPY UNSPECIFIED] [Concomitant]
     Indication: SKIN DISORDER
     Dosage: 50 MG, QD, FORMULATION: EXT
     Route: 051
     Dates: start: 20120519, end: 20120604

REACTIONS (2)
  - Erythema [Recovered/Resolved]
  - Erythema [Recovered/Resolved]
